FAERS Safety Report 13132452 (Version 4)
Quarter: 2017Q4

REPORT INFORMATION
  Report Type: Report from Study
  Country: None (occurrence: CA)
  Receive Date: 20170120
  Receipt Date: 20171122
  Transmission Date: 20180320
  Serious: Yes (Other)
  Sender: FDA-Public Use
  Company Number: CA-ABBVIE-17K-028-1838863-00

PATIENT
  Age: 24 Year
  Sex: Female

DRUGS (1)
  1. HUMIRA [Suspect]
     Active Substance: ADALIMUMAB
     Indication: CROHN^S DISEASE
     Route: 058
     Dates: start: 20150709, end: 20171107

REACTIONS (5)
  - Crohn^s disease [Not Recovered/Not Resolved]
  - Faeces hard [Recovered/Resolved]
  - Intestinal stenosis [Not Recovered/Not Resolved]
  - Intestinal ulcer [Not Recovered/Not Resolved]
  - Oophorectomy [Unknown]

NARRATIVE: CASE EVENT DATE: 20170106
